FAERS Safety Report 10435164 (Version 1)
Quarter: 2014Q3

REPORT INFORMATION
  Report Type: Spontaneous
  Country: JP (occurrence: JP)
  Receive Date: 20140907
  Receipt Date: 20140907
  Transmission Date: 20150326
  Serious: Yes (Hospitalization, Other)
  Sender: FDA-Public Use
  Company Number: PHHY2010JP096886

PATIENT
  Age: 75 Year
  Sex: Male

DRUGS (2)
  1. EXJADE [Concomitant]
     Active Substance: DEFERASIROX
     Dosage: UNK UKN, UNK
     Dates: start: 20080701
  2. DESFERAL [Suspect]
     Active Substance: DEFEROXAMINE MESYLATE
     Indication: MYELODYSPLASTIC SYNDROME
     Dosage: 500 MG, UNK
     Dates: start: 20070901

REACTIONS (5)
  - Gastric ulcer haemorrhage [Unknown]
  - Anaemia [Unknown]
  - Melaena [Unknown]
  - Mallory-Weiss syndrome [Unknown]
  - Anorexia nervosa [Unknown]

NARRATIVE: CASE EVENT DATE: 20090219
